FAERS Safety Report 14521346 (Version 1)
Quarter: 2018Q1

REPORT INFORMATION
  Report Type: Spontaneous
  Country: US (occurrence: US)
  Receive Date: 20180212
  Receipt Date: 20180212
  Transmission Date: 20180509
  Serious: Yes (Other)
  Sender: FDA-Public Use
  Company Number: US-BAYER-2018-027510

PATIENT
  Age: 74 Year
  Sex: Male
  Weight: 72 kg

DRUGS (3)
  1. ALKA-SELTZER PLUS COLD AND COUGH FORMULA [Suspect]
     Active Substance: ACETAMINOPHEN\CHLORPHENIRAMINE\DEXTROMETHORPHAN\PHENYLEPHRINE
     Indication: HYPERSENSITIVITY
     Dosage: 2 DF, UNK
     Route: 048
     Dates: start: 20180207, end: 20180209
  2. ALKA-SELTZER PLUS COLD AND COUGH FORMULA [Suspect]
     Active Substance: ACETAMINOPHEN\CHLORPHENIRAMINE\DEXTROMETHORPHAN\PHENYLEPHRINE
     Indication: NASOPHARYNGITIS
  3. LIPITOR [Concomitant]
     Active Substance: ATORVASTATIN CALCIUM
     Dosage: UNK

REACTIONS (3)
  - Choking [Recovered/Resolved]
  - Product use complaint [None]
  - Product use complaint [Recovered/Resolved]

NARRATIVE: CASE EVENT DATE: 201802
